FAERS Safety Report 9693537 (Version 2)
Quarter: 2013Q4

REPORT INFORMATION
  Report Type: Spontaneous
  Country: US (occurrence: US)
  Receive Date: 20131118
  Receipt Date: 20131209
  Transmission Date: 20140711
  Serious: Yes (Death)
  Sender: FDA-Public Use
  Company Number: US-GLAXOSMITHKLINE-A1049954A

PATIENT
  Age: 52 Year
  Sex: Female

DRUGS (2)
  1. FLOLAN [Suspect]
     Indication: COR PULMONALE CHRONIC
     Dosage: 36NGKM CONTINUOUS
     Route: 042
     Dates: start: 20070117
  2. REVATIO [Concomitant]

REACTIONS (1)
  - Death [Fatal]
